FAERS Safety Report 24407295 (Version 1)
Quarter: 2024Q4

REPORT INFORMATION
  Report Type: Spontaneous
  Country: US (occurrence: US)
  Receive Date: 20241007
  Receipt Date: 20241007
  Transmission Date: 20250114
  Serious: No
  Sender: GALDERMA
  Company Number: US-GALDERMA-US2023014187

PATIENT

DRUGS (1)
  1. MIRVASO [Suspect]
     Active Substance: BRIMONIDINE TARTRATE
     Indication: Product used for unknown indication
     Dosage: 1 DOSAGE FORM
     Route: 061

REACTIONS (3)
  - Erythema [Unknown]
  - Drug ineffective [Not Recovered/Not Resolved]
  - Product container issue [Recovered/Resolved]
